FAERS Safety Report 7740151-7 (Version None)
Quarter: 2011Q3

REPORT INFORMATION
  Report Type: 
  Country: None (occurrence: None)
  Receive Date: 20110909
  Receipt Date: 20110831
  Transmission Date: 20111222
  Serious: Yes (Other)
  Sender: FDA-Public Use
  Company Number: CA-JNJFOC-20110805203

PATIENT
  Sex: Male
  Weight: 104 kg

DRUGS (2)
  1. REMICADE [Suspect]
     Dosage: 2 DOSES OF 950MG
     Route: 042
  2. REMICADE [Suspect]
     Indication: CROHN'S DISEASE
     Dosage: APPROX. 15 INFUSIONS TOTAL
     Route: 042
     Dates: start: 20090403, end: 20110401

REACTIONS (1)
  - LYMPHOMA [None]
